FAERS Safety Report 9445704 (Version 4)
Quarter: 2014Q2

REPORT INFORMATION
  Report Type: Report from Study
  Country: DE (occurrence: DE)
  Receive Date: 20130807
  Receipt Date: 20140523
  Transmission Date: 20141212
  Serious: Yes (Other)
  Sender: FDA-Public Use
  Company Number: PHHY2013DE082188

PATIENT
  Sex: Male
  Weight: 63 kg

DRUGS (5)
  1. AMN107 [Suspect]
     Indication: CHRONIC MYELOID LEUKAEMIA
     Dosage: 600 MG, PER DAY
     Route: 048
     Dates: start: 20121211, end: 20130113
  2. AMN107 [Suspect]
     Dosage: 600 MG, PER DAY
     Route: 048
     Dates: start: 20130206, end: 20130311
  3. AMN107 [Suspect]
     Dosage: 400 MG, PER DAY
     Route: 048
     Dates: start: 20130312, end: 20130409
  4. AMN107 [Suspect]
     Dosage: 400 MG, PER DAY
     Dates: start: 20130410, end: 20130506
  5. DECORTIN [Concomitant]
     Indication: ORGANISING PNEUMONIA
     Dosage: 30 MG, DAILY
     Dates: start: 20120201

REACTIONS (1)
  - Thrombocytopenia [Recovered/Resolved]
